FAERS Safety Report 9388222 (Version 2)
Quarter: 2013Q3

REPORT INFORMATION
  Report Type: Spontaneous
  Country: US (occurrence: None)
  Receive Date: 20130703
  Receipt Date: 20130808
  Transmission Date: 20140515
  Serious: Yes (Life-Threatening, Hospitalization)
  Sender: FDA-Public Use
  Company Number: 13-03222

PATIENT
  Age: 57 Year
  Sex: Male

DRUGS (17)
  1. ALBUTEROL SULFATE INHALATION SOLUTION, 0.083% [Suspect]
     Indication: CHRONIC OBSTRUCTIVE PULMONARY DISEASE
     Dosage: 1 VIAL 054
  2. VERAMYST [Concomitant]
  3. ADVAIR 230/21 [Concomitant]
  4. SINGULAIR [Concomitant]
  5. OXYGEN [Concomitant]
  6. PROVENTIL/VENTOLIN [Concomitant]
  7. NEBULES [Concomitant]
  8. GABAPENTIN [Concomitant]
  9. IBUPROFEN [Concomitant]
  10. VENTOLIN [Concomitant]
  11. SPIRIVA [Concomitant]
  12. HYTRIN [Concomitant]
  13. NORVASC [Concomitant]
  14. PRINIVIL [Concomitant]
  15. PHENERGAN [Concomitant]
  16. OXYCODONE [Concomitant]
  17. ATIVAN [Concomitant]

REACTIONS (4)
  - Lung disorder [None]
  - Product quality issue [None]
  - Chronic obstructive pulmonary disease [None]
  - Pneumonia [None]
